FAERS Safety Report 10006887 (Version 1)
Quarter: 2014Q1

REPORT INFORMATION
  Report Type: Spontaneous
  Country: JP (occurrence: None)
  Receive Date: 20140311
  Receipt Date: 20140311
  Transmission Date: 20141002
  Serious: Yes (Life-Threatening, Disabling)
  Sender: FDA-Public Use
  Company Number: DSJ-2014-05890

PATIENT
  Age: 86 Year
  Sex: Male
  Weight: 66 kg

DRUGS (10)
  1. OLMETEC (OLMESARTAN MEDOXOMIL) [Suspect]
     Indication: HYPERTENSION
     Route: 048
     Dates: start: 20131028, end: 20131108
  2. ARTIST (CARVEDILOL) (CARVEDILOL) [Suspect]
     Indication: HYPERTENSION
     Route: 048
     Dates: start: 20131102, end: 20131114
  3. LOXONIN (LOXOPROFEN SODIUM) [Suspect]
     Indication: PAIN MANAGEMENT
     Route: 048
     Dates: start: 20131101, end: 20131121
  4. TAKEPRON OD (LANSOPRAZOLE) [Suspect]
     Indication: PROPHYLAXIS AGAINST GASTROINTESTINAL ULCER
     Route: 048
     Dates: start: 20131029, end: 20131114
  5. VANCOMYCIN HYDROCHLORIDE (VANCOMYCIN HYDROCHLORIDE) [Suspect]
     Route: 042
     Dates: start: 20131029, end: 20131110
  6. MEROPENEM [Suspect]
     Dates: start: 20131029, end: 20131110
  7. AMLODIPINE [Suspect]
     Route: 048
     Dates: start: 20131028, end: 20131108
  8. ANGIOTENSIN II ANTAGONIST+ CALCIUM CHANNEL BLO (ANGIOTENSIN II BLO) [Suspect]
     Indication: HYPERTENSION
     Route: 048
     Dates: start: 20131109, end: 20131110
  9. DILTIAZEM HYDROCHLORIDE (DILTIAZEM HYDROCHLORIDE) [Suspect]
     Indication: HYPERTENSION
  10. SEPAMIT (NIFEDIPINE) [Suspect]
     Indication: HYPERTENSION
     Route: 048

REACTIONS (5)
  - Rash [None]
  - Drug eruption [None]
  - Hepatic function abnormal [None]
  - Alanine aminotransferase increased [None]
  - Toxic epidermal necrolysis [None]
